FAERS Safety Report 11148341 (Version 1)
Quarter: 2015Q2

REPORT INFORMATION
  Report Type: Other
  Country: BR (occurrence: BR)
  Receive Date: 20150529
  Receipt Date: 20150529
  Transmission Date: 20150821
  Serious: Yes (Other)
  Sender: FDA-Public Use
  Company Number: BR-EMD SERONO-8026672

PATIENT
  Age: 43 Year
  Sex: Female

DRUGS (1)
  1. INTERFERON BETA-1A [Suspect]
     Active Substance: INTERFERON BETA-1A
     Indication: MULTIPLE SCLEROSIS
     Dates: start: 2006, end: 2010

REACTIONS (2)
  - Sarcoidosis [Recovered/Resolved]
  - Xanthoma [Recovered/Resolved]

NARRATIVE: CASE EVENT DATE: 2009
